FAERS Safety Report 25311555 (Version 2)
Quarter: 2025Q3

REPORT INFORMATION
  Report Type: Report from Study
  Country: US (occurrence: US)
  Receive Date: 20250514
  Receipt Date: 20250820
  Transmission Date: 20251020
  Serious: Yes (Other)
  Sender: NOVARTIS
  Company Number: US-002147023-NVSC2024US204012

PATIENT
  Age: 90 Year
  Sex: Male

DRUGS (1)
  1. LEQVIO [Suspect]
     Active Substance: INCLISIRAN SODIUM
     Indication: Product used for unknown indication
     Route: 058
     Dates: start: 202411

REACTIONS (7)
  - Neuropathy peripheral [Unknown]
  - Memory impairment [Unknown]
  - Sleep disorder [Unknown]
  - COVID-19 [Unknown]
  - Asthenia [Unknown]
  - Back pain [Unknown]
  - Muscular weakness [Unknown]

NARRATIVE: CASE EVENT DATE: 20250101
